FAERS Safety Report 14834353 (Version 1)
Quarter: 2018Q2

REPORT INFORMATION
  Report Type: Spontaneous
  Country: US (occurrence: US)
  Receive Date: 20180412
  Receipt Date: 20180412
  Transmission Date: 20180711
  Serious: Yes (Death)
  Sender: FDA-Public Use
  Company Number: None

PATIENT
  Age: 41 Year
  Sex: Male

DRUGS (2)
  1. CLOZAPINE. [Suspect]
     Active Substance: CLOZAPINE
     Indication: SCHIZOAFFECTIVE DISORDER
     Route: 048
  2. HALDOL 1MG BID [Concomitant]
     Dates: start: 20000101, end: 20141231

REACTIONS (5)
  - Norovirus test positive [None]
  - Abdominal compartment syndrome [None]
  - Influenza [None]
  - Dyspnoea [None]
  - Intestinal obstruction [None]

NARRATIVE: CASE EVENT DATE: 20141231
